FAERS Safety Report 9483283 (Version 1)
Quarter: 2013Q3

REPORT INFORMATION
  Report Type: Spontaneous
  Country: CA (occurrence: CA)
  Receive Date: 20130828
  Receipt Date: 20130828
  Transmission Date: 20140515
  Serious: Yes (Hospitalization)
  Sender: FDA-Public Use
  Company Number: CA-AMGEN-KDL248420

PATIENT
  Sex: Female

DRUGS (3)
  1. ENBREL [Suspect]
     Indication: RHEUMATOID ARTHRITIS
     Dosage: 25 MG, QWK
     Route: 058
     Dates: start: 20020624, end: 20060416
  2. PREDNISONE [Concomitant]
     Dosage: 5 MG, QD
  3. PANADEINE CO [Concomitant]
     Dosage: UNK UNK, PRN

REACTIONS (2)
  - Localised infection [Unknown]
  - Knee arthroplasty [Unknown]
